FAERS Safety Report 17001293 (Version 1)
Quarter: 2019Q4

REPORT INFORMATION
  Report Type: Spontaneous
  Country: US (occurrence: US)
  Receive Date: 20191106
  Receipt Date: 20191106
  Transmission Date: 20200122
  Serious: No
  Sender: FDA-Public Use
  Company Number: US-PFIZER INC-2017116444

PATIENT
  Age: 58 Year

DRUGS (1)
  1. PREMPRO [Suspect]
     Active Substance: ESTROGENS, CONJUGATED\MEDROXYPROGESTERONE ACETATE
     Indication: HOT FLUSH
     Dosage: UNK UNK, 1X/DAY  [ESTROGENS CONJUGATED 0.45MG][MEDROXYPROGESTERONE ACETATE 1.5MG]
     Route: 048
     Dates: start: 20170314

REACTIONS (2)
  - Fibroma [Unknown]
  - Insomnia [Unknown]
